FAERS Safety Report 7933393-9 (Version None)
Quarter: 2011Q4

REPORT INFORMATION
  Report Type: 
  Country: None (occurrence: None)
  Receive Date: 20111122
  Receipt Date: 20111122
  Transmission Date: 20120403
  Serious: No
  Sender: FDA-Public Use
  Company Number: None

PATIENT
  Sex: Female

DRUGS (1)
  1. LIOTHYRONINE SODIUM [Suspect]
     Indication: HYPOTHYROIDISM
     Dosage: 1 TABLET
     Route: 048

REACTIONS (5)
  - OVERDOSE [None]
  - HYPERHIDROSIS [None]
  - INSOMNIA [None]
  - AGGRESSION [None]
  - PRODUCT QUALITY ISSUE [None]
